FAERS Safety Report 12101460 (Version 2)
Quarter: 2016Q1

REPORT INFORMATION
  Report Type: Spontaneous
  Country: CA (occurrence: CA)
  Receive Date: 20160222
  Receipt Date: 20160224
  Transmission Date: 20160526
  Serious: Yes (Other)
  Sender: FDA-Public Use
  Company Number: CA-GILEAD-2016-0199026

PATIENT
  Age: 38 Year
  Sex: Male
  Weight: 76 kg

DRUGS (7)
  1. TRUVADA [Concomitant]
     Active Substance: EMTRICITABINE\TENOFOVIR DISOPROXIL FUMARATE
     Indication: PRODUCT USED FOR UNKNOWN INDICATION
     Route: 065
  2. FERROUS GLUCONATE [Concomitant]
     Active Substance: FERROUS GLUCONATE
  3. HARVONI [Suspect]
     Active Substance: LEDIPASVIR\SOFOSBUVIR
     Indication: CHRONIC HEPATITIS C
     Dosage: 1 DF, QD
     Route: 048
  4. METHADONE [Concomitant]
     Active Substance: METHADONE HYDROCHLORIDE
  5. VITAMIN D                          /00107901/ [Concomitant]
     Active Substance: ERGOCALCIFEROL
  6. CALCIUM [Concomitant]
     Active Substance: CALCIUM
  7. REYATAZ [Concomitant]
     Active Substance: ATAZANAVIR SULFATE

REACTIONS (2)
  - Cellulitis [Unknown]
  - Oedema peripheral [Unknown]
